FAERS Safety Report 15819004 (Version 1)
Quarter: 2019Q1

REPORT INFORMATION
  Report Type: Spontaneous
  Country: US (occurrence: US)
  Receive Date: 20190114
  Receipt Date: 20190114
  Transmission Date: 20190417
  Serious: Yes (Hospitalization, Other)
  Sender: FDA-Public Use
  Company Number: US-DRREDDYS-USA/USA/19/0106741

PATIENT
  Age: 52 Year
  Sex: Male

DRUGS (11)
  1. MELATONIN [Suspect]
     Active Substance: MELATONIN
     Indication: HUNTINGTON^S DISEASE
  2. CLONAZEPAM. [Concomitant]
     Active Substance: CLONAZEPAM
     Dosage: AT BEDTIME
  3. FLUOXETINE [Interacting]
     Active Substance: FLUOXETINE HYDROCHLORIDE
     Dosage: DOSE REDUCED
  4. OLANZAPINE. [Concomitant]
     Active Substance: OLANZAPINE
     Indication: HUNTINGTON^S DISEASE
     Dosage: NIGHTLY
  5. FLUOXETINE [Interacting]
     Active Substance: FLUOXETINE HYDROCHLORIDE
  6. FLUCONAZOLE. [Suspect]
     Active Substance: FLUCONAZOLE
     Indication: ONYCHOMYCOSIS
  7. CLONAZEPAM. [Concomitant]
     Active Substance: CLONAZEPAM
  8. FLUOXETINE [Interacting]
     Active Substance: FLUOXETINE HYDROCHLORIDE
     Indication: HUNTINGTON^S DISEASE
     Dosage: FLUOXETINE HAD BEEN TITRATED FROM 20MG TO 60MG DAILY OVER A THREE-MONTH PERIOD AND CONTINUED UNTIL A
  9. FLUOXETINE [Interacting]
     Active Substance: FLUOXETINE HYDROCHLORIDE
  10. LISDEXAMFETAMINE [Interacting]
     Active Substance: LISDEXAMFETAMINE
     Indication: HUNTINGTON^S DISEASE
  11. CLONAZEPAM. [Concomitant]
     Active Substance: CLONAZEPAM
     Indication: HUNTINGTON^S DISEASE
     Dosage: AT BEDTIME

REACTIONS (4)
  - Condition aggravated [Recovering/Resolving]
  - Drug level increased [Recovering/Resolving]
  - Choreoathetosis [Recovering/Resolving]
  - Drug interaction [Recovering/Resolving]
